FAERS Safety Report 18088883 (Version 3)
Quarter: 2020Q4

REPORT INFORMATION
  Report Type: Report from Study
  Country: AR (occurrence: AR)
  Receive Date: 20200729
  Receipt Date: 20201015
  Transmission Date: 20210113
  Serious: Yes (Death, Hospitalization, Other)
  Sender: FDA-Public Use
  Company Number: NVSC2020AR212005

PATIENT
  Age: 55 Year
  Sex: Male

DRUGS (2)
  1. ATORVASTATIN [Concomitant]
     Active Substance: ATORVASTATIN
     Indication: BLOOD CHOLESTEROL INCREASED
     Dosage: UNK
     Route: 065
  2. TAFINLAR COMBO [Suspect]
     Active Substance: DABRAFENIB\TRAMETINIB
     Indication: METASTASES TO CENTRAL NERVOUS SYSTEM
     Dosage: 4 DF, QD
     Route: 065
     Dates: start: 20191116

REACTIONS (8)
  - Pain [Unknown]
  - Metastasis [Unknown]
  - Movement disorder [Not Recovered/Not Resolved]
  - Pneumonia [Unknown]
  - Arthralgia [Unknown]
  - Blood pressure increased [Unknown]
  - Paralysis [Recovered/Resolved]
  - Cardio-respiratory arrest [Fatal]

NARRATIVE: CASE EVENT DATE: 20200714
